FAERS Safety Report 5844075-1 (Version None)
Quarter: 2008Q3

REPORT INFORMATION
  Report Type: 
  Country: None (occurrence: None)
  Receive Date: 20080808
  Receipt Date: 20060626
  Transmission Date: 20090109
  Serious: Yes (Death)
  Sender: FDA-Public Use
  Company Number: 2006-00428FE

PATIENT
  Age: 14 Year
  Sex: Male

DRUGS (1)
  1. SOMATROPIN (SOMATROPIN) [Suspect]
     Indication: PRADER-WILLI SYNDROME
     Dosage: 0.11 MG

REACTIONS (3)
  - RESPIRATORY FAILURE [None]
  - RIGHT VENTRICULAR FAILURE [None]
  - VIRAL UPPER RESPIRATORY TRACT INFECTION [None]
